FAERS Safety Report 5858940-2 (Version None)
Quarter: 2008Q3

REPORT INFORMATION
  Report Type: 
  Country: None (occurrence: None)
  Receive Date: 20080825
  Receipt Date: 20080812
  Transmission Date: 20090109
  Serious: Yes (Hospitalization)
  Sender: FDA-Public Use
  Company Number: 14421

PATIENT
  Age: 41 Year
  Sex: Female

DRUGS (5)
  1. MORPHINE SULFATE [Suspect]
     Indication: BACK PAIN
     Dosage: 60MG BID ORALLY
     Route: 048
     Dates: start: 20080418, end: 20080601
  2. AMBIEN [Concomitant]
  3. SYNTHROID [Concomitant]
  4. SOMA [Concomitant]
  5. LEXAPRO [Concomitant]

REACTIONS (8)
  - ABDOMINAL PAIN UPPER [None]
  - CHILLS [None]
  - CHOLECYSTECTOMY [None]
  - DIARRHOEA [None]
  - DRUG ABUSER [None]
  - NAUSEA [None]
  - PYREXIA [None]
  - VOMITING [None]
